FAERS Safety Report 9349950 (Version 2)
Quarter: 2013Q3

REPORT INFORMATION
  Report Type: Spontaneous
  Country: JP (occurrence: JP)
  Receive Date: 20130614
  Receipt Date: 20130711
  Transmission Date: 20140515
  Serious: Yes (Hospitalization)
  Sender: FDA-Public Use
  Company Number: PHHY2013JP060244

PATIENT
  Sex: 0

DRUGS (3)
  1. RIVASTIGMIN [Suspect]
     Indication: DEMENTIA ALZHEIMER^S TYPE
     Dosage: 4.5 MG ONCE A DAY
     Route: 062
  2. RIVASTIGMIN [Suspect]
     Dosage: 9 MG ONCE A DAY
     Route: 062
  3. RIVASTIGMIN [Suspect]
     Dosage: 13.5 MG ONCE A DAY
     Route: 062

REACTIONS (1)
  - Adverse event [Unknown]
